FAERS Safety Report 19891551 (Version 4)
Quarter: 2022Q2

REPORT INFORMATION
  Report Type: Report from Study
  Country: CA (occurrence: CA)
  Receive Date: 20210928
  Receipt Date: 20220525
  Transmission Date: 20220720
  Serious: Yes (Hospitalization, Other)
  Sender: FDA-Public Use
  Company Number: CA-JNJFOC-20210918629

PATIENT
  Age: 64 Year
  Sex: Male
  Weight: 82 kg

DRUGS (3)
  1. REMICADE [Suspect]
     Active Substance: INFLIXIMAB
     Indication: Crohn^s disease
     Dosage: 10MG/KG?PATIENT RECEIVED INFUSION ON 20-APR-2021.?PATIENT RECEIVED INFUSION ON 12-AUG-2021.?PATIENT
     Route: 042
     Dates: start: 20210407
  2. REMICADE [Suspect]
     Active Substance: INFLIXIMAB
     Route: 042
     Dates: start: 20210921
  3. REMICADE [Suspect]
     Active Substance: INFLIXIMAB
     Dosage: LAST INFUSED ON 04-APR-2022
     Route: 042

REACTIONS (9)
  - Peripheral artery aneurysm [Unknown]
  - Aortic aneurysm [Unknown]
  - Medullary thyroid cancer [Unknown]
  - Post procedural infection [Recovering/Resolving]
  - Gastrointestinal inflammation [Unknown]
  - Aphonia [Not Recovered/Not Resolved]
  - Drug level decreased [Not Recovered/Not Resolved]
  - Product use issue [Unknown]
  - Off label use [Unknown]

NARRATIVE: CASE EVENT DATE: 20210101
